FAERS Safety Report 8967838 (Version 1)
Quarter: 2012Q4

REPORT INFORMATION
  Report Type: 
  Country: US (occurrence: US)
  Receive Date: 20121218
  Receipt Date: 20121218
  Transmission Date: 20130627
  Serious: Yes (Other)
  Sender: FDA-Public Use
  Company Number: US-AMGEN-USASP2012059979

PATIENT
  Age: 80 Year
  Sex: Female
  Weight: 58.5 kg

DRUGS (12)
  1. PROLIA [Suspect]
     Indication: OSTEOPOROSIS POSTMENOPAUSAL
     Dosage: 60 mg, q6mo
     Dates: start: 20120905
  2. OSCAL D                            /07451701/ [Concomitant]
     Indication: OSTEOPOROSIS
     Dosage: 500 mg, qd
     Route: 048
  3. KLOR-CON [Concomitant]
     Indication: VITAMIN K DECREASED
     Dosage: 10 mEq, tid
     Route: 048
  4. PRESERVISION [Concomitant]
     Dosage: UNK
  5. NEXIUM                             /01479302/ [Concomitant]
     Indication: GASTROOESOPHAGEAL REFLUX DISEASE
     Dosage: 40 mg, qd
     Route: 048
  6. ASPIRIN LOW [Concomitant]
     Dosage: UNK
  7. ECOTRIN [Concomitant]
     Indication: ANTICOAGULANT THERAPY
     Dosage: 81 mg, qd
     Route: 048
  8. POTASSIUM CHLORIDE [Concomitant]
     Indication: BLOOD POTASSIUM DECREASED
     Dosage: 10 mEq, tid
     Route: 048
  9. MULTIVITAMIN                       /00097801/ [Concomitant]
     Indication: HYPOVITAMINOSIS
     Dosage: UNK UNK, qd
     Route: 048
  10. OSCAL [Concomitant]
  11. NEXIUM [Concomitant]
  12. LOW DOSE ASPIRIN [Concomitant]

REACTIONS (5)
  - Breast cancer in situ [Unknown]
  - Tremor [Unknown]
  - Tooth disorder [Unknown]
  - Diarrhoea [Recovered/Resolved]
  - Vitamin B12 deficiency [Not Recovered/Not Resolved]
